FAERS Safety Report 9818067 (Version 2)
Quarter: 2014Q1

REPORT INFORMATION
  Report Type: Spontaneous
  Country: US (occurrence: US)
  Receive Date: 20140115
  Receipt Date: 20140115
  Transmission Date: 20141002
  Serious: Yes (Other)
  Sender: FDA-Public Use
  Company Number: US-BEH-2012032561

PATIENT
  Age: 58 Year
  Sex: Female

DRUGS (2)
  1. ZEMAIRA [Suspect]
     Route: 042
  2. ARALAST [Suspect]
     Dosage: JUNY-2010 TO AUG-2010

REACTIONS (3)
  - Device related infection [Recovered/Resolved]
  - Pyrexia [Recovered/Resolved]
  - Chills [Recovered/Resolved]
